FAERS Safety Report 21216557 (Version 1)
Quarter: 2022Q3

REPORT INFORMATION
  Report Type: Spontaneous
  Country: AT (occurrence: AT)
  Receive Date: 20220816
  Receipt Date: 20220816
  Transmission Date: 20221027
  Serious: Yes (Life-Threatening, Other)
  Sender: FDA-Public Use
  Company Number: AT-SA-SAC20220815000209

PATIENT
  Age: 48 Year
  Sex: Male

DRUGS (1)
  1. DUPIXENT [Suspect]
     Active Substance: DUPILUMAB
     Indication: Dermatitis atopic
     Route: 065
     Dates: start: 20210430, end: 20220619

REACTIONS (7)
  - Guillain-Barre syndrome [Not Recovered/Not Resolved]
  - Condition aggravated [Unknown]
  - Ophthalmic herpes zoster [Not Recovered/Not Resolved]
  - Pneumonia [Not Recovered/Not Resolved]
  - Paraesthesia [Unknown]
  - Respiratory failure [Unknown]
  - Paresis [Unknown]

NARRATIVE: CASE EVENT DATE: 20220601
